FAERS Safety Report 10283694 (Version 2)
Quarter: 2014Q3

REPORT INFORMATION
  Report Type: Spontaneous
  Country: BR (occurrence: BR)
  Receive Date: 20140708
  Receipt Date: 20140718
  Transmission Date: 20150326
  Serious: Yes (Hospitalization)
  Sender: FDA-Public Use
  Company Number: BR-PFIZER INC-2014183416

PATIENT
  Age: 92 Year
  Sex: Female
  Weight: 62 kg

DRUGS (5)
  1. MYTEDON [Concomitant]
     Indication: PAIN
     Dosage: 3 TABLETS OF UNSPECIFIED DOSAGE DAILY
     Dates: start: 2006, end: 201211
  2. LYRICA [Suspect]
     Active Substance: PREGABALIN
     Indication: HERPES ZOSTER
     Dosage: 1 CAPSULE OF 150MG + 1 CAPSULE OF 75MG (225 MG), DAILY
     Route: 048
     Dates: start: 2011, end: 20121115
  3. LYRICA [Suspect]
     Active Substance: PREGABALIN
     Indication: ANTIDEPRESSANT THERAPY
  4. MYTEDON [Concomitant]
     Indication: ANTIDEPRESSANT THERAPY
  5. MYTEDON [Concomitant]
     Indication: ANALGESIC THERAPY

REACTIONS (6)
  - Dyspnoea [Unknown]
  - Blood pressure increased [Unknown]
  - Pain [Unknown]
  - Pleural effusion [Unknown]
  - Cardiac failure [Unknown]
  - Pulmonary oedema [Unknown]
